FAERS Safety Report 7312820-4 (Version None)
Quarter: 2011Q1

REPORT INFORMATION
  Report Type: 
  Country: None (occurrence: None)
  Receive Date: 20110224
  Receipt Date: 20100504
  Transmission Date: 20110831
  Serious: No
  Sender: FDA-Public Use
  Company Number: US-MYLANLABS-2010S1005846

PATIENT
  Age: 76 Year
  Sex: Male
  Weight: 68.04 kg

DRUGS (5)
  1. ALLOPURINOL [Concomitant]
     Indication: GOUT
     Route: 048
  2. METOPROLOL TARTRATE [Suspect]
     Route: 048
     Dates: start: 20091208, end: 20100201
  3. METOPROLOL TARTRATE [Suspect]
     Indication: HYPERTENSION
     Route: 048
     Dates: end: 20091208
  4. TRILIPIX [Concomitant]
     Route: 048
  5. CRESTOR [Concomitant]
     Indication: BLOOD CHOLESTEROL INCREASED
     Route: 048

REACTIONS (3)
  - BLOOD PRESSURE INCREASED [None]
  - TINNITUS [None]
  - RENAL DISORDER [None]
